FAERS Safety Report 15855357 (Version 1)
Quarter: 2019Q1

REPORT INFORMATION
  Report Type: Spontaneous
  Country: US (occurrence: US)
  Receive Date: 20190122
  Receipt Date: 20190122
  Transmission Date: 20190417
  Serious: Yes (Other)
  Sender: FDA-Public Use
  Company Number: US-FRESENIUS KABI-FK201900508

PATIENT
  Age: 71 Year
  Sex: Female
  Weight: 68.18 kg

DRUGS (1)
  1. XYLOCAINE WITH EPINEPHRINE [Suspect]
     Active Substance: EPINEPHRINE BITARTRATE\LIDOCAINE HYDROCHLORIDE
     Indication: LOCAL ANAESTHESIA
     Route: 065
     Dates: start: 20190103, end: 20190103

REACTIONS (5)
  - Haemorrhage [Unknown]
  - Emotional distress [Unknown]
  - Pain [Unknown]
  - Drug ineffective [Unknown]
  - Impaired healing [Unknown]

NARRATIVE: CASE EVENT DATE: 20190103
